FAERS Safety Report 17945438 (Version 1)
Quarter: 2020Q2

REPORT INFORMATION
  Report Type: Spontaneous
  Country: US (occurrence: CA)
  Receive Date: 20200625
  Receipt Date: 20200625
  Transmission Date: 20200714
  Serious: Yes (Other)
  Sender: FDA-Public Use
  Company Number: US-BAYER-2020-111897

PATIENT
  Age: 49 Year
  Sex: Female
  Weight: 59 kg

DRUGS (5)
  1. TADALAFIL. [Concomitant]
     Active Substance: TADALAFIL
  2. REMODULIN [Concomitant]
     Active Substance: TREPROSTINIL
     Indication: PULMONARY ARTERIAL HYPERTENSION
     Dosage: 0.080 ?G/KG
     Route: 042
     Dates: start: 20180705
  3. ADEMPAS [Suspect]
     Active Substance: RIOCIGUAT
     Indication: PRODUCT USED FOR UNKNOWN INDICATION
  4. AMBRISENTAN [Concomitant]
     Active Substance: AMBRISENTAN
     Indication: PULMONARY ARTERIAL HYPERTENSION
     Dosage: 10 MG, QD
     Route: 048
     Dates: start: 20150526
  5. REMODULIN [Concomitant]
     Active Substance: TREPROSTINIL
     Indication: PULMONARY ARTERIAL HYPERTENSION
     Dosage: 0.080 ?G/KG
     Route: 042
     Dates: start: 20180705

REACTIONS (30)
  - Headache [Unknown]
  - Arthralgia [Unknown]
  - Vascular device infection [None]
  - Catheter site pruritus [Not Recovered/Not Resolved]
  - Infusion site pruritus [None]
  - Fatigue [None]
  - Pain in jaw [Unknown]
  - Infusion site vesicles [None]
  - Fatigue [Unknown]
  - Pain in extremity [Unknown]
  - Arthralgia [Unknown]
  - Catheter site pruritus [None]
  - Infusion site vesicles [None]
  - Infusion site discharge [Not Recovered/Not Resolved]
  - Dyspepsia [None]
  - Headache [None]
  - Infusion site erythema [None]
  - Infusion site discharge [Not Recovered/Not Resolved]
  - Urticaria [None]
  - Seasonal allergy [None]
  - Pain in jaw [Unknown]
  - Infusion site erythema [None]
  - Infusion site irritation [None]
  - Sinus disorder [Recovering/Resolving]
  - Diarrhoea [Not Recovered/Not Resolved]
  - Dyspnoea exertional [None]
  - Diarrhoea [Not Recovered/Not Resolved]
  - Pain in extremity [Unknown]
  - Infusion site pruritus [None]
  - Dyspepsia [Unknown]

NARRATIVE: CASE EVENT DATE: 20200331
